FAERS Safety Report 5146641-8 (Version None)
Quarter: 2006Q4

REPORT INFORMATION
  Report Type: 
  Country: None (occurrence: None)
  Receive Date: 20061107
  Receipt Date: 20061107
  Transmission Date: 20070319
  Serious: Yes (Other)
  Sender: FDA-Public Use
  Company Number: None

PATIENT
  Age: 47 Year
  Sex: Female
  Weight: 72.5755 kg

DRUGS (2)
  1. LEVAQUIN [Suspect]
     Indication: NASAL SEPTUM DEVIATION
     Dosage: 500MG 1X IV
     Route: 042
     Dates: start: 20061012, end: 20061012
  2. LEVAQUIN [Suspect]
     Indication: SURGERY
     Dosage: 500MG 1X IV
     Route: 042
     Dates: start: 20061012, end: 20061012

REACTIONS (1)
  - PRURITUS [None]
